FAERS Safety Report 14669374 (Version 2)
Quarter: 2018Q3

REPORT INFORMATION
  Report Type: Spontaneous
  Country: ES (occurrence: ES)
  Receive Date: 20180322
  Receipt Date: 20180724
  Transmission Date: 20181010
  Serious: Yes (Other)
  Sender: FDA-Public Use
  Company Number: ES-TEVA-2018-ES-870012

PATIENT
  Age: 69 Year
  Sex: Male

DRUGS (2)
  1. ACETILCISTE?NA 200 MG SOLUCI?N/SUSPENSI?N ORAL 30 SOBRES [Suspect]
     Active Substance: ACETYLCYSTEINE
     Indication: UPPER RESPIRATORY TRACT INFECTION
     Dosage: 600 MILLIGRAM DAILY;
     Route: 048
     Dates: start: 20180103, end: 20180105
  2. AZITROMICINA (7019A) [Suspect]
     Active Substance: AZITHROMYCIN
     Route: 048
     Dates: start: 20180103, end: 20180105

REACTIONS (3)
  - Bronchospasm [Recovering/Resolving]
  - Angioedema [Recovering/Resolving]
  - Palatal oedema [Recovering/Resolving]

NARRATIVE: CASE EVENT DATE: 20180105
